FAERS Safety Report 25728566 (Version 1)
Quarter: 2025Q3

REPORT INFORMATION
  Report Type: Report from Study
  Country: CN (occurrence: CN)
  Receive Date: 20250826
  Receipt Date: 20250826
  Transmission Date: 20251021
  Serious: Yes (Hospitalization)
  Sender: ELI LILLY AND COMPANY
  Company Number: CN-ELI_LILLY_AND_COMPANY-CN202508009503

PATIENT
  Age: 62 Year
  Sex: Female
  Weight: 60 kg

DRUGS (2)
  1. ABEMACICLIB [Suspect]
     Active Substance: ABEMACICLIB
     Indication: Breast cancer
     Dosage: 150 MG, BID
     Route: 048
     Dates: start: 20250122
  2. ABEMACICLIB [Suspect]
     Active Substance: ABEMACICLIB
     Route: 065

REACTIONS (6)
  - Septic shock [Unknown]
  - Discomfort [Unknown]
  - Heat stroke [Unknown]
  - Infection [Unknown]
  - Diarrhoea [Recovered/Resolved]
  - Asthenia [Unknown]
